FAERS Safety Report 5486288-7 (Version None)
Quarter: 2007Q4

REPORT INFORMATION
  Report Type: 
  Country: None (occurrence: None)
  Receive Date: 20071016
  Receipt Date: 20071008
  Transmission Date: 20080405
  Serious: Yes (Other)
  Sender: FDA-Public Use
  Company Number: PHBS2007CN16690

PATIENT
  Age: 38 Year
  Sex: Male

DRUGS (3)
  1. LOTENSIN [Suspect]
     Indication: HYPERTENSION
     Dosage: 10 MG, QD
     Route: 048
     Dates: start: 20050101
  2. ASPIRIN [Concomitant]
  3. JIN KUI SHEN QI PILL [Concomitant]

REACTIONS (1)
  - HEART RATE DECREASED [None]
